FAERS Safety Report 5189536-6 (Version None)
Quarter: 2006Q4

REPORT INFORMATION
  Report Type: 
  Country: None (occurrence: None)
  Receive Date: 20061215
  Receipt Date: 20061205
  Transmission Date: 20070319
  Serious: Yes (Other)
  Sender: FDA-Public Use
  Company Number: 2006149792

PATIENT
  Age: 38 Year
  Sex: Female
  Weight: 54.4316 kg

DRUGS (2)
  1. ZOLOFT [Suspect]
     Indication: PREMENSTRUAL SYNDROME
     Dosage: 50 MG (50 MG,QD : EVERY DAY)
     Dates: start: 20061204
  2. ULTRAM [Suspect]
     Dosage: 50 MG (50 MG,QD : EVERY DAY)
     Dates: start: 20061203

REACTIONS (4)
  - ANOREXIA [None]
  - ASTHENIA [None]
  - DRUG INTERACTION [None]
  - SEROTONIN SYNDROME [None]
